FAERS Safety Report 13733617 (Version 4)
Quarter: 2017Q3

REPORT INFORMATION
  Report Type: Report from Study
  Country: CO (occurrence: CO)
  Receive Date: 20170707
  Receipt Date: 20170727
  Transmission Date: 20171127
  Serious: Yes (Hospitalization, Other)
  Sender: FDA-Public Use
  Company Number: CO-SAOL THERAPEUTICS-2017SAO01149

PATIENT
  Sex: Female
  Weight: 57.6 kg

DRUGS (4)
  1. BACLOFEN. [Suspect]
     Active Substance: BACLOFEN
     Dosage: 300.3 ?G, \DAY
     Dates: start: 20160825, end: 20161021
  2. BACLOFEN. [Suspect]
     Active Substance: BACLOFEN
     Dosage: 320.2 ?G, \DAY
     Dates: start: 20161021, end: 20170630
  3. BACLOFEN. [Suspect]
     Active Substance: BACLOFEN
     Dosage: 479 ?G, \DAY
     Route: 037
  4. BACLOFEN. [Suspect]
     Active Substance: BACLOFEN
     Dosage: 379.7 ?G, \DAY
     Route: 037
     Dates: start: 20170630

REACTIONS (11)
  - Dyspnoea [Recovered/Resolved]
  - Movement disorder [Recovered/Resolved]
  - Device dislocation [Recovered/Resolved]
  - Anxiety [Recovered/Resolved]
  - Pruritus [Recovered/Resolved]
  - Muscle spasticity [Recovered/Resolved]
  - Aggression [Recovered/Resolved]
  - Insomnia [Recovered/Resolved]
  - Musculoskeletal pain [Recovered/Resolved]
  - Catheter site fibrosis [Recovered/Resolved]
  - Intentional self-injury [Recovered/Resolved]

NARRATIVE: CASE EVENT DATE: 20170630
